FAERS Safety Report 17594208 (Version 1)
Quarter: 2020Q1

REPORT INFORMATION
  Report Type: Spontaneous
  Country: GB (occurrence: GB)
  Receive Date: 20200327
  Receipt Date: 20200327
  Transmission Date: 20200409
  Serious: Yes (Hospitalization)
  Sender: FDA-Public Use
  Company Number: GB-BAUSCH-BL-2020-009459

PATIENT

DRUGS (8)
  1. ZOLEDRONIC ACID [Concomitant]
     Active Substance: ZOLEDRONIC ACID
     Indication: EXPOSURE VIA BREAST MILK
     Route: 063
  2. PREDONINE [Concomitant]
     Active Substance: PREDNISOLONE
     Indication: EXPOSURE VIA BREAST MILK
     Dosage: 2.5 M
     Route: 063
  3. PARACETAMOL [Concomitant]
     Active Substance: ACETAMINOPHEN
     Indication: EXPOSURE VIA BREAST MILK
     Route: 063
  4. BROTIZOLAM [Concomitant]
     Active Substance: BROTIZOLAM
     Indication: EXPOSURE VIA BREAST MILK
     Dosage: 75 MH
     Route: 063
  5. LOXOPROFEN [Concomitant]
     Active Substance: LOXOPROFEN
     Indication: EXPOSURE VIA BREAST MILK
     Route: 063
  6. BONALON [Concomitant]
     Active Substance: ALENDRONATE SODIUM
     Indication: EXPOSURE VIA BREAST MILK
     Route: 063
  7. KYNTHEUM (BRODALUMAB) [Suspect]
     Active Substance: BRODALUMAB
     Indication: EXPOSURE VIA BREAST MILK
     Route: 063
  8. ONEALFA [Concomitant]
     Active Substance: ALFACALCIDOL
     Indication: EXPOSURE VIA BREAST MILK
     Route: 063

REACTIONS (2)
  - Exposure via breast milk [Unknown]
  - Rash [Unknown]
